FAERS Safety Report 5142933-7 (Version None)
Quarter: 2006Q4

REPORT INFORMATION
  Report Type: 
  Country: None (occurrence: None)
  Receive Date: 20061030
  Receipt Date: 20061017
  Transmission Date: 20070319
  Serious: Yes (Life-Threatening)
  Sender: FDA-Public Use
  Company Number: 2006129231

PATIENT
  Age: 71 Year
  Sex: Female

DRUGS (4)
  1. ATARAX [Suspect]
     Dosage: 37.5 MG, ORAL
     Route: 048
  2. EPOETIN ALFA (EPOETIN ALFA) [Suspect]
     Indication: APLASTIC ANAEMIA
     Dosage: INTRAVENOUS
     Route: 042
  3. HEXAQUINE (NIAOULI OIL, QUININE BENZOATE, THIAMINE HYROCHLORIDE) [Suspect]
     Indication: PAIN IN EXTREMITY
     Dosage: ORAL
     Route: 048
  4. LENALIDOMIDE (LENALIDOMIDE) [Suspect]
     Indication: MULTIPLE MYELOMA
     Dosage: 25 MG, ORAL
     Route: 048

REACTIONS (11)
  - ABDOMINAL PAIN [None]
  - AKINESIA [None]
  - BLOOD PRESSURE DIASTOLIC DECREASED [None]
  - DILATATION VENTRICULAR [None]
  - HOT FLUSH [None]
  - HYPOTHERMIA [None]
  - MUSCLE SPASMS [None]
  - MYOCARDIAL INFARCTION [None]
  - PAIN IN EXTREMITY [None]
  - PERICARDIAL EFFUSION [None]
  - TACHYCARDIA [None]
